FAERS Safety Report 8436959-5 (Version None)
Quarter: 2012Q2

REPORT INFORMATION
  Report Type: 
  Country: None (occurrence: None)
  Receive Date: 20120614
  Receipt Date: 20120608
  Transmission Date: 20120825
  Serious: Yes (Other)
  Sender: FDA-Public Use
  Company Number: VE-PFIZER INC-2012132044

PATIENT
  Age: 82 Year
  Sex: Male

DRUGS (2)
  1. LIPITOR [Suspect]
     Indication: HYPERCHOLESTEROLAEMIA
     Dosage: UNK
     Route: 048
     Dates: start: 20100101
  2. AVODART [Concomitant]
     Dosage: UNK
     Route: 048
     Dates: start: 20100101

REACTIONS (1)
  - MYOCARDIAL INFARCTION [None]
